FAERS Safety Report 5297291-4 (Version None)
Quarter: 2007Q2

REPORT INFORMATION
  Report Type: 
  Country: None (occurrence: None)
  Receive Date: 20070409
  Receipt Date: 20070326
  Transmission Date: 20071010
  Serious: Yes (Death, Hospitalization)
  Sender: FDA-Public Use
  Company Number: MEDI-0005521

PATIENT
  Age: 10 Day
  Sex: Male

DRUGS (1)
  1. SYNAGIS [Suspect]
     Indication: ANTIVIRAL PROPHYLAXIS
     Dosage: INTRAMUSCULAR
     Route: 030
     Dates: start: 20070315, end: 20070315

REACTIONS (2)
  - GENERAL PHYSICAL HEALTH DETERIORATION [None]
  - NECROTISING ENTEROCOLITIS NEONATAL [None]
